FAERS Safety Report 25838283 (Version 3)
Quarter: 2025Q4

REPORT INFORMATION
  Report Type: Spontaneous
  Country: EU (occurrence: EU)
  Receive Date: 20250923
  Receipt Date: 20251030
  Transmission Date: 20260117
  Serious: Yes (Hospitalization, Other)
  Sender: ABBVIE
  Company Number: EU-ABBVIE-6472487

PATIENT
  Age: 67 Year
  Sex: Female

DRUGS (6)
  1. ELAHERE [Suspect]
     Active Substance: MIRVETUXIMAB SORAVTANSINE-GYNX
     Indication: Ovarian cancer
     Dosage: 7 CYCLES
     Route: 042
     Dates: start: 20250428, end: 20250903
  2. PAROXETINE [Concomitant]
     Active Substance: PAROXETINE
     Indication: Product used for unknown indication
     Route: 048
  3. LEVOTHYROXINE SODIUM [Concomitant]
     Active Substance: LEVOTHYROXINE SODIUM
     Indication: Product used for unknown indication
     Dosage: 200 MCG
     Route: 048
  4. FERROUS SULFATE [Concomitant]
     Active Substance: FERROUS SULFATE
     Indication: Product used for unknown indication
     Route: 048
  5. THIAMINE HYDROCHLORIDE [Concomitant]
     Active Substance: THIAMINE HYDROCHLORIDE
     Indication: Product used for unknown indication
     Route: 048
  6. Eparina [Concomitant]
     Indication: Product used for unknown indication
     Dosage: 1 FL BID

REACTIONS (7)
  - Pneumonia [Recovering/Resolving]
  - Pleural thickening [Recovering/Resolving]
  - Salpingo-oophorectomy bilateral [Recovering/Resolving]
  - COVID-19 [Recovering/Resolving]
  - Hysterectomy [Recovering/Resolving]
  - General physical health deterioration [Recovering/Resolving]
  - Pneumonitis [Unknown]

NARRATIVE: CASE EVENT DATE: 20250101
